FAERS Safety Report 24302269 (Version 2)
Quarter: 2024Q3

REPORT INFORMATION
  Report Type: Spontaneous
  Country: JP (occurrence: JP)
  Receive Date: 20240910
  Receipt Date: 20240919
  Transmission Date: 20241016
  Serious: Yes (Other)
  Sender: PFIZER
  Company Number: JP-PFIZER INC-PV202400116687

PATIENT
  Age: 80 Year
  Sex: Female

DRUGS (14)
  1. PAXLOVID [Suspect]
     Active Substance: NIRMATRELVIR\RITONAVIR
     Indication: COVID-19 treatment
     Dosage: 1 SEET PACK/DAY, 2X/DAY
     Route: 048
     Dates: start: 20240823, end: 20240826
  2. DEXTROMETHORPHAN HYDROBROMIDE [Suspect]
     Active Substance: DEXTROMETHORPHAN HYDROBROMIDE
     Indication: Cough
     Dosage: PRESCRIBED FOR 5 DAYS
     Route: 048
     Dates: start: 20240823, end: 20240828
  3. CARBOCYSTEINE [Suspect]
     Active Substance: CARBOCYSTEINE
     Indication: Cough
     Dosage: PRESCRIBED FOR 5 DAYS
     Route: 048
     Dates: start: 20240823, end: 20240828
  4. CARBOCYSTEINE [Suspect]
     Active Substance: CARBOCYSTEINE
     Indication: Productive cough
  5. TRANEXAMIC ACID [Suspect]
     Active Substance: TRANEXAMIC ACID
     Indication: Pharyngeal inflammation
     Dosage: PRESCRIBED FOR 5 DAYS
     Route: 048
     Dates: start: 20240823, end: 20240828
  6. CALONAL [Suspect]
     Active Substance: ACETAMINOPHEN
     Indication: Pyrexia
     Dosage: 2 TABLETS AT A TIME, WHEN PYREXIA OR PAIN DEVELOPED (PRESCRIBED FOR 10 USES, AS NEEDED)
     Route: 048
     Dates: start: 20240823, end: 20240828
  7. CALONAL [Suspect]
     Active Substance: ACETAMINOPHEN
     Indication: Pain
  8. TEPRENONE [Suspect]
     Active Substance: TEPRENONE
     Indication: Prophylaxis
     Dosage: 1 CAPSULE AT A TIME, WHEN PYREXIA OR PAIN DEVELOPED (PRESCRIBED FOR 10 USES, AS NEEDED)
     Route: 048
     Dates: start: 20240823, end: 20240828
  9. OLMESARTAN OD DSEP [Concomitant]
     Dosage: 1 DF
     Route: 048
     Dates: end: 20240826
  10. EZETIMIBE [Concomitant]
     Active Substance: EZETIMIBE
     Dosage: 1 DF
     Route: 048
     Dates: end: 20240826
  11. ELDECALCITOL [Concomitant]
     Active Substance: ELDECALCITOL
     Dosage: 1 DF
     Route: 048
     Dates: end: 20240826
  12. CALCIUM ASPARTATE [Concomitant]
     Active Substance: CALCIUM ASPARTATE
     Dosage: UNK
     Route: 048
     Dates: end: 20240826
  13. LOXOPROFEN SODIUM [Concomitant]
     Active Substance: LOXOPROFEN SODIUM
     Dosage: UNK
     Route: 062
     Dates: end: 20240826
  14. ZESTAK [Concomitant]
     Dosage: UNK
     Route: 062
     Dates: end: 20240826

REACTIONS (3)
  - Altered state of consciousness [Recovered/Resolved]
  - Tremor [Recovered/Resolved]
  - Asthenia [Recovered/Resolved]

NARRATIVE: CASE EVENT DATE: 20240823
